FAERS Safety Report 18274475 (Version 2)
Quarter: 2021Q1

REPORT INFORMATION
  Report Type: Report from Study
  Country: CA (occurrence: CA)
  Receive Date: 20200916
  Receipt Date: 20210301
  Transmission Date: 20210419
  Serious: Yes (Hospitalization, Disabling)
  Sender: FDA-Public Use
  Company Number: CA-JNJFOC-20200828543

PATIENT
  Age: 71 Year
  Sex: Female
  Weight: 99 kg

DRUGS (3)
  1. REMICADE [Suspect]
     Active Substance: INFLIXIMAB
     Indication: RHEUMATOID ARTHRITIS
     Route: 042
     Dates: start: 20100621, end: 20200903
  2. REMICADE [Suspect]
     Active Substance: INFLIXIMAB
     Indication: CROHN^S DISEASE
  3. REMICADE [Suspect]
     Active Substance: INFLIXIMAB
     Indication: PSORIATIC ARTHROPATHY

REACTIONS (8)
  - Bacteraemia [Unknown]
  - Decreased appetite [Unknown]
  - Fatigue [Unknown]
  - Pain [Unknown]
  - General physical health deterioration [Unknown]
  - Treatment noncompliance [Unknown]
  - Mobility decreased [Unknown]
  - Bedridden [Unknown]

NARRATIVE: CASE EVENT DATE: 202008
